FAERS Safety Report 16135196 (Version 1)
Quarter: 2019Q1

REPORT INFORMATION
  Report Type: Report from Study
  Country: US (occurrence: US)
  Receive Date: 20190329
  Receipt Date: 20190329
  Transmission Date: 20190418
  Serious: Yes (Other)
  Sender: FDA-Public Use
  Company Number: US-PFIZER INC-2014090762

PATIENT
  Age: 14 Year
  Sex: Female

DRUGS (7)
  1. AMINOPHYLLINE. [Concomitant]
     Active Substance: AMINOPHYLLINE
     Indication: PROPHYLAXIS
  2. HYDROCORTISONE. [Concomitant]
     Active Substance: HYDROCORTISONE
     Indication: ACUTE LYMPHOCYTIC LEUKAEMIA
     Route: 037
  3. LEUCOVORIN. [Concomitant]
     Active Substance: LEUCOVORIN
     Indication: PROPHYLAXIS
     Dosage: 10 MG/M2, CYCLIC
  4. LEUCOVORIN. [Concomitant]
     Active Substance: LEUCOVORIN
     Indication: ACUTE LYMPHOCYTIC LEUKAEMIA
  5. METHOTREXATE SODIUM. [Suspect]
     Active Substance: METHOTREXATE SODIUM
     Dosage: 1 G/M2
     Route: 041
  6. METHOTREXATE SODIUM. [Suspect]
     Active Substance: METHOTREXATE SODIUM
     Indication: ACUTE LYMPHOCYTIC LEUKAEMIA
     Dosage: 5 G/M2 OVER 24 HOURS
     Route: 037
  7. CYTARABINE. [Concomitant]
     Active Substance: CYTARABINE
     Indication: ACUTE LYMPHOCYTIC LEUKAEMIA
     Route: 037

REACTIONS (5)
  - Neurotoxicity [Unknown]
  - Leukoencephalopathy [Unknown]
  - Headache [Unknown]
  - Cerebrovascular accident [Unknown]
  - Confusional state [Unknown]
